FAERS Safety Report 4764578-0 (Version None)
Quarter: 2005Q3

REPORT INFORMATION
  Report Type: 
  Country: None (occurrence: None)
  Receive Date: 20050906
  Receipt Date: 20050819
  Transmission Date: 20060218
  Serious: Yes (Hospitalization)
  Sender: FDA-Public Use
  Company Number: 0104-2415

PATIENT
  Age: 71 Year
  Sex: Male
  Weight: 82.1011 kg

DRUGS (6)
  1. ADVICOR 1000/20 [Suspect]
     Indication: BLOOD CHOLESTEROL INCREASED
     Dosage: 1 TABLET(S) QHS PO
     Route: 048
     Dates: start: 20050401, end: 20050801
  2. NIASPAN [Suspect]
     Indication: BLOOD CHOLESTEROL INCREASED
     Dosage: 500 MG QHS PO
     Route: 048
     Dates: start: 20041101, end: 20050801
  3. ATENOLOL [Concomitant]
  4. CLARINEX  /USA/ [Concomitant]
  5. VITAMINS [Concomitant]
  6. ASPIRIN [Concomitant]

REACTIONS (4)
  - CHROMATURIA [None]
  - ESCHERICHIA INFECTION [None]
  - PNEUMONIA [None]
  - RENAL FAILURE [None]
